FAERS Safety Report 19029083 (Version 2)
Quarter: 2021Q1

REPORT INFORMATION
  Report Type: Spontaneous
  Country: IN (occurrence: IN)
  Receive Date: 20210318
  Receipt Date: 20210325
  Transmission Date: 20210420
  Serious: Yes (Other)
  Sender: FDA-Public Use
  Company Number: IN-PFIZER INC-2019218965

PATIENT
  Age: 56 Year
  Sex: Female

DRUGS (4)
  1. CERITINIB [Suspect]
     Active Substance: CERITINIB
     Indication: NON-SMALL CELL LUNG CANCER METASTATIC
     Dosage: UNK
     Dates: start: 20191126, end: 20200219
  2. CRIZALK [Suspect]
     Active Substance: CRIZOTINIB
     Indication: NON-SMALL CELL LUNG CANCER METASTATIC
     Dosage: 250 MG, 2X/DAY FOR 5DAY/WEEK
     Route: 048
     Dates: start: 20180508, end: 201911
  3. CERITINIB [Suspect]
     Active Substance: CERITINIB
     Dosage: 300 MG
  4. CERITINIB [Suspect]
     Active Substance: CERITINIB
     Dosage: UNK (AT REDUCED DOSE)
     Dates: start: 20200321

REACTIONS (4)
  - Neoplasm progression [Unknown]
  - Interstitial lung disease [Recovered/Resolved]
  - Fluid retention [Recovered/Resolved]
  - Pericardial effusion [Recovered/Resolved]

NARRATIVE: CASE EVENT DATE: 201911
